FAERS Safety Report 5446561-5 (Version None)
Quarter: 2007Q3

REPORT INFORMATION
  Report Type: 
  Country: None (occurrence: None)
  Receive Date: 20070907
  Receipt Date: 20070904
  Transmission Date: 20080115
  Serious: Yes (Death, Hospitalization, Disabling, Other)
  Sender: FDA-Public Use
  Company Number: US-PFIZER INC-2006105931

PATIENT
  Sex: Male

DRUGS (3)
  1. CELEBREX [Suspect]
     Indication: RHEUMATOID ARTHRITIS
     Dosage: FREQ:100 MG - 200 MG
     Dates: start: 20020101, end: 20030526
  2. BEXTRA [Suspect]
     Indication: RHEUMATOID ARTHRITIS
     Dates: start: 20030930, end: 20040731
  3. VIOXX [Suspect]
     Route: 048
     Dates: start: 20030919, end: 20040801

REACTIONS (2)
  - CEREBROVASCULAR ACCIDENT [None]
  - MYOCARDIAL INFARCTION [None]
